FAERS Safety Report 5966415-5 (Version None)
Quarter: 2008Q4

REPORT INFORMATION
  Report Type: 
  Country: None (occurrence: None)
  Receive Date: 20081125
  Receipt Date: 20081002
  Transmission Date: 20090506
  Serious: No
  Sender: FDA-Public Use
  Company Number: US-AMGEN-KDL311274

PATIENT
  Sex: Male

DRUGS (5)
  1. ENBREL [Suspect]
     Indication: REITER'S SYNDROME
  2. METHOTREXATE [Concomitant]
  3. INDOCIN [Concomitant]
  4. UNSPECIFIED STEROIDS [Concomitant]
  5. ZITHROMAX [Concomitant]

REACTIONS (5)
  - INJECTION SITE DISCOMFORT [None]
  - INJECTION SITE HAEMATOMA [None]
  - INJECTION SITE PAIN [None]
  - INJECTION SITE RASH [None]
  - JOINT SWELLING [None]
